FAERS Safety Report 10883053 (Version 2)
Quarter: 2015Q1

REPORT INFORMATION
  Report Type: Report from Study
  Country: FR (occurrence: FR)
  Receive Date: 20150303
  Receipt Date: 20150305
  Transmission Date: 20150721
  Serious: Yes (Hospitalization, Other)
  Sender: FDA-Public Use
  Company Number: FR-SA-2014SA138844

PATIENT
  Age: 71 Year
  Sex: Male

DRUGS (1)
  1. DOCETAXEL. [Suspect]
     Active Substance: DOCETAXEL
     Indication: PROSTATE CANCER METASTATIC
     Route: 065

REACTIONS (24)
  - Vertigo [Unknown]
  - Fall [Unknown]
  - Leukopenia [Unknown]
  - Paraesthesia [Not Recovered/Not Resolved]
  - Balance disorder [Unknown]
  - Mobility decreased [Unknown]
  - Lacrimation increased [Recovering/Resolving]
  - Dysuria [Unknown]
  - Constipation [Not Recovered/Not Resolved]
  - Erythema [Unknown]
  - Polyuria [Unknown]
  - Peripheral sensory neuropathy [Not Recovered/Not Resolved]
  - Enuresis [Unknown]
  - Pain in extremity [Not Recovered/Not Resolved]
  - Nausea [Unknown]
  - Oedema peripheral [Recovering/Resolving]
  - Pelvic pain [Unknown]
  - Dyspnoea [Unknown]
  - Muscle spasms [Not Recovered/Not Resolved]
  - Back pain [Recovering/Resolving]
  - Oedema peripheral [Not Recovered/Not Resolved]
  - Fatigue [Unknown]
  - Decreased appetite [Unknown]
  - Eye pain [Unknown]

NARRATIVE: CASE EVENT DATE: 20140201
